FAERS Safety Report 23129170 (Version 1)
Quarter: 2023Q4

REPORT INFORMATION
  Report Type: Report from Study
  Country: NL (occurrence: NL)
  Receive Date: 20231031
  Receipt Date: 20231031
  Transmission Date: 20240110
  Serious: Yes (Death)
  Sender: FDA-Public Use
  Company Number: NL-BAYER-2023A154129

PATIENT
  Age: 78 Year
  Sex: Male

DRUGS (1)
  1. BETAFERON [Suspect]
     Active Substance: INTERFERON BETA-1B
     Indication: Multiple sclerosis
     Dosage: 1 DF, QOD
     Route: 058
     Dates: start: 20180709, end: 20231018

REACTIONS (1)
  - Death [Fatal]

NARRATIVE: CASE EVENT DATE: 20231018
